FAERS Safety Report 7064996 (Version 3)
Quarter: 2014Q1

REPORT INFORMATION
  Report Type: Spontaneous
  Country: US (occurrence: US)
  Receive Date: 20090728
  Receipt Date: 20140121
  Transmission Date: 20141002
  Serious: No
  Sender: FDA-Public Use
  Company Number: US-JNJFOC-20090707014

PATIENT
  Age: 48 Year
  Sex: Female
  Weight: 61.24 kg

DRUGS (3)
  1. DURAGESIC [Suspect]
     Indication: PAIN
     Route: 062
     Dates: start: 2001, end: 201001
  2. DURAGESIC [Suspect]
     Indication: PAIN
     Route: 062
     Dates: start: 201001
  3. DILANTIN [Concomitant]
     Indication: CONVULSION
     Route: 065
     Dates: start: 1999

REACTIONS (5)
  - Wrong technique in drug usage process [Not Recovered/Not Resolved]
  - Application site erythema [Not Recovered/Not Resolved]
  - Drug effect decreased [Not Recovered/Not Resolved]
  - Therapeutic response decreased [Not Recovered/Not Resolved]
  - Product quality issue [Unknown]
